FAERS Safety Report 5649927-3 (Version None)
Quarter: 2008Q1

REPORT INFORMATION
  Report Type: 
  Country: None (occurrence: None)
  Receive Date: 20080304
  Receipt Date: 20080221
  Transmission Date: 20080703
  Serious: Yes (Life-Threatening, Hospitalization)
  Sender: FDA-Public Use
  Company Number: ES-BAYER-200813935GPV

PATIENT
  Age: 70 Year
  Sex: Male

DRUGS (1)
  1. PROFLOX [Suspect]
     Indication: CHRONIC OBSTRUCTIVE PULMONARY DISEASE
     Dosage: TOTAL DAILY DOSE: 400 MG  UNIT DOSE: 400 MG
     Route: 048
     Dates: start: 20080218, end: 20080218

REACTIONS (6)
  - ANAPHYLACTIC REACTION [None]
  - HAEMODYNAMIC INSTABILITY [None]
  - OEDEMA PERIPHERAL [None]
  - OXYGEN SATURATION DECREASED [None]
  - SUFFOCATION FEELING [None]
  - TACHYCARDIA [None]
